FAERS Safety Report 8283211-7 (Version None)
Quarter: 2012Q2

REPORT INFORMATION
  Report Type: 
  Country: None (occurrence: None)
  Receive Date: 20120413
  Receipt Date: 20120410
  Transmission Date: 20120825
  Serious: Yes (Disabling)
  Sender: FDA-Public Use
  Company Number: US-MERCK-1201USA00341

PATIENT
  Age: 63 Year
  Sex: Female

DRUGS (3)
  1. BONIVA [Concomitant]
     Indication: OSTEOPOROSIS
     Route: 065
  2. FOSAMAX [Suspect]
     Indication: OSTEOPOROSIS
     Route: 048
     Dates: end: 20100101
  3. PAXIL [Concomitant]
     Route: 065
     Dates: start: 19980101

REACTIONS (4)
  - HYPERTENSION [None]
  - TOOTH DISORDER [None]
  - LOW TURNOVER OSTEOPATHY [None]
  - FEMUR FRACTURE [None]
